FAERS Safety Report 13300088 (Version 2)
Quarter: 2017Q1

REPORT INFORMATION
  Report Type: Spontaneous
  Country: AU (occurrence: AU)
  Receive Date: 20170306
  Receipt Date: 20170329
  Transmission Date: 20170428
  Serious: Yes (Hospitalization, Other)
  Sender: FDA-Public Use
  Company Number: PHHY2017AU031781

PATIENT
  Age: 75 Year
  Sex: Male

DRUGS (3)
  1. STALEVO [Suspect]
     Active Substance: CARBIDOPA\ENTACAPONE\LEVODOPA
     Indication: PRODUCT USED FOR UNKNOWN INDICATION
     Dosage: 5 DF, QD
     Route: 048
  2. STALEVO [Suspect]
     Active Substance: CARBIDOPA\ENTACAPONE\LEVODOPA
     Dosage: (FIVE 200MG STALEVO TABLETS IN ONE DOSE)
     Route: 048
     Dates: start: 20170228
  3. STALEVO [Suspect]
     Active Substance: CARBIDOPA\ENTACAPONE\LEVODOPA
     Dosage: 200 MG, UNK
     Route: 048

REACTIONS (6)
  - Sedation [Recovering/Resolving]
  - Palpitations [Recovered/Resolved]
  - Overdose [Recovered/Resolved]
  - Dyskinesia [Not Recovered/Not Resolved]
  - Paranoia [Recovered/Resolved]
  - Inappropriate schedule of drug administration [Recovered/Resolved]

NARRATIVE: CASE EVENT DATE: 20170227
